FAERS Safety Report 20634080 (Version 1)
Quarter: 2022Q1

REPORT INFORMATION
  Report Type: Spontaneous
  Country: None (occurrence: GB)
  Receive Date: 20220324
  Receipt Date: 20220324
  Transmission Date: 20220424
  Serious: Yes (Other)
  Sender: FDA-Public Use
  Company Number: GB-Ascend Therapeutics US, LLC-2127099

PATIENT
  Sex: Female

DRUGS (3)
  1. ESTROGEL [Suspect]
     Active Substance: ESTRADIOL
     Indication: Product used for unknown indication
     Route: 065
  2. ESTROGEL [Suspect]
     Active Substance: ESTRADIOL
  3. ESTRADIOL [Suspect]
     Active Substance: ESTRADIOL
     Route: 065

REACTIONS (13)
  - Suicidal ideation [Unknown]
  - Myalgia [Unknown]
  - Body temperature fluctuation [Unknown]
  - Feeling abnormal [Unknown]
  - Anxiety [Unknown]
  - Abdominal distension [Unknown]
  - Dyspepsia [Unknown]
  - Irritability [Unknown]
  - Fatigue [Unknown]
  - Night sweats [Unknown]
  - Feeling cold [Unknown]
  - Weight increased [Unknown]
  - Drug ineffective [None]

NARRATIVE: CASE EVENT DATE: 20220101
